FAERS Safety Report 8464661 (Version 1)
Quarter: 2020Q3

REPORT INFORMATION
  Report Type: Spontaneous
  Country: US (occurrence: None)
  Receive Date: 20120309
  Receipt Date: 20120309
  Transmission Date: 20201105
  Serious: Yes (Life-Threatening)
  Sender: FDA-Public Use
  Company Number: 2012SP011798

PATIENT

DRUGS (2)
  1. TREMELIMUMAB. [Suspect]
     Active Substance: TREMELIMUMAB
     Indication: MALIGNANT MELANOMA STAGE IV
     Dosage: 15 MCG/KG, IV
     Route: 042
  2. INTERFERON ALFA?2B [Suspect]
     Active Substance: INTERFERON ALFA-2B
     Indication: MALIGNANT MELANOMA STAGE IV
     Dosage: IV
     Route: 042

REACTIONS (5)
  - Hepatitis [None]
  - Colitis [None]
  - Neutropenia [None]
  - Diarrhoea [None]
  - Blood creatine phosphokinase increased [None]
